FAERS Safety Report 25396518 (Version 1)
Quarter: 2025Q2

REPORT INFORMATION
  Report Type: Spontaneous
  Country: US (occurrence: US)
  Receive Date: 20250604
  Receipt Date: 20250604
  Transmission Date: 20250717
  Serious: No
  Sender: ARS PHARMACEUTICALS OPERATIONS, INC.
  Company Number: US-ARS PHARMACEUTICALS OPERATIONS, INC.-2025ARP00054

PATIENT

DRUGS (1)
  1. NEFFY [Suspect]
     Active Substance: EPINEPHRINE
     Route: 045

REACTIONS (4)
  - Drug ineffective [Unknown]
  - Feeling jittery [Unknown]
  - Heart rate increased [Unknown]
  - Nasal dryness [Recovered/Resolved]
